FAERS Safety Report 10228709 (Version 1)
Quarter: 2014Q2

REPORT INFORMATION
  Report Type: Spontaneous
  Country: US (occurrence: US)
  Receive Date: 20140610
  Receipt Date: 20140610
  Transmission Date: 20141212
  Serious: No
  Sender: FDA-Public Use
  Company Number: US-ENDO PHARMACEUTICALS INC.-LORA20140003

PATIENT
  Sex: Female

DRUGS (1)
  1. LORAZEPAM TABLETS 2MG [Suspect]
     Indication: ANXIETY
     Route: 048
     Dates: start: 2014

REACTIONS (1)
  - Drug effect decreased [Unknown]
